FAERS Safety Report 23083775 (Version 1)
Quarter: 2023Q4

REPORT INFORMATION
  Report Type: Report from Study
  Country: DE (occurrence: DE)
  Receive Date: 20231019
  Receipt Date: 20231019
  Transmission Date: 20240110
  Serious: Yes (Hospitalization, Other)
  Sender: FDA-Public Use
  Company Number: DE-JNJFOC-20230970090

PATIENT
  Age: 9 Decade
  Sex: Female
  Weight: 55.1 kg

DRUGS (4)
  1. LENALIDOMIDE [Suspect]
     Active Substance: LENALIDOMIDE
     Indication: Plasma cell myeloma
     Dosage: 25MG(LAST DOSE:22-JUN-23NEXT DOSE:22-JUL-23)
     Route: 065
     Dates: start: 20230503
  2. DARZALEX [Suspect]
     Active Substance: DARATUMUMAB
     Indication: Plasma cell myeloma
     Dosage: 16MG/KG(LAST DOSE:08-JUN-23NEXT DOSE:08-JUL-23)
     Route: 042
     Dates: start: 20230503
  3. DEXAMETHASONE [Suspect]
     Active Substance: DEXAMETHASONE
     Indication: Plasma cell myeloma
     Dosage: 40MG(LAST DOSE:25-MAY-23NEXT DOSE:24-JUN-23)
     Route: 042
     Dates: start: 20230503
  4. DEXAMETHASONE [Suspect]
     Active Substance: DEXAMETHASONE
     Dosage: 20MG(LAST DOSE:08-JUN-23NEXT DOSE:08-JUL-23)
     Route: 042
     Dates: start: 20230601

REACTIONS (2)
  - Dyspnoea exertional [Recovered/Resolved]
  - Pancytopenia [Unknown]

NARRATIVE: CASE EVENT DATE: 20230623
